FAERS Safety Report 10154897 (Version 1)
Quarter: 2014Q2

REPORT INFORMATION
  Report Type: Other
  Country: US (occurrence: US)
  Receive Date: 20140506
  Receipt Date: 20140506
  Transmission Date: 20141212
  Serious: Yes (Hospitalization, Other)
  Sender: FDA-Public Use
  Company Number: US-SHIRE-US201401733

PATIENT
  Age: 21 Year
  Sex: Male
  Weight: 57.5 kg

DRUGS (1)
  1. ELAPRASE [Suspect]
     Indication: MUCOPOLYSACCHARIDOSIS II
     Dosage: 30 MG, 1X/WEEK
     Route: 041
     Dates: start: 20060914

REACTIONS (3)
  - Nervous system disorder [Unknown]
  - Seroma [Recovered/Resolved]
  - Cough [Not Recovered/Not Resolved]
